FAERS Safety Report 7300827-2 (Version None)
Quarter: 2011Q1

REPORT INFORMATION
  Report Type: 
  Country: None (occurrence: None)
  Receive Date: 20110103
  Receipt Date: 20091029
  Transmission Date: 20110831
  Serious: Yes (Life-Threatening, Hospitalization)
  Sender: FDA-Public Use
  Company Number: US-003660

PATIENT
  Age: 66 Year
  Sex: Female
  Weight: 91 kg

DRUGS (3)
  1. MULTIHANCE [Suspect]
     Indication: NUCLEAR MAGNETIC RESONANCE IMAGING
     Dosage: 19ML ONCE INTRAVENOUS
     Route: 042
     Dates: start: 20091027, end: 20091027
  2. MULTIHANCE [Suspect]
     Indication: MASS
     Dosage: 19ML ONCE INTRAVENOUS
     Route: 042
     Dates: start: 20091027, end: 20091027
  3. MEDICATION FOR HYPERTENSION [Concomitant]

REACTIONS (1)
  - ANAPHYLACTIC SHOCK [None]
